FAERS Safety Report 5731287-0 (Version None)
Quarter: 2008Q2

REPORT INFORMATION
  Report Type: 
  Country: None (occurrence: None)
  Receive Date: 20080505
  Receipt Date: 20080407
  Transmission Date: 20081010
  Serious: Yes (Death)
  Sender: FDA-Public Use
  Company Number: 2008S1005710

PATIENT
  Age: 60 Year
  Sex: Female

DRUGS (2)
  1. INDAPAMIDE [Suspect]
     Indication: DRUG USE FOR UNKNOWN INDICATION
  2. LARIAM [Suspect]
     Indication: MALARIA PROPHYLAXIS
     Dosage: ORAL
     Route: 048

REACTIONS (1)
  - DEATH [None]
